FAERS Safety Report 7907301-0 (Version None)
Quarter: 2011Q4

REPORT INFORMATION
  Report Type: 
  Country: None (occurrence: None)
  Receive Date: 20111110
  Receipt Date: 20111102
  Transmission Date: 20120403
  Serious: Yes (Hospitalization)
  Sender: FDA-Public Use
  Company Number: US-GLAXOSMITHKLINE-A0949346A

PATIENT
  Sex: Female

DRUGS (16)
  1. TRAZODONE HCL [Concomitant]
  2. LORATADINE [Concomitant]
  3. UNKNOWN [Concomitant]
  4. UNKNOWN [Concomitant]
  5. POTASSIUM [Concomitant]
  6. COMBIVENT [Concomitant]
  7. NEXIUM [Concomitant]
  8. SEA SALT SPRAY [Concomitant]
  9. ARIXTRA [Suspect]
     Indication: DEEP VEIN THROMBOSIS
     Dosage: 7.5MG PER DAY
     Route: 058
     Dates: start: 20060101
  10. HYDROCHLOROTHIAZIDE [Concomitant]
  11. OXYBUTYNIN [Concomitant]
  12. FLONASE [Concomitant]
  13. SPIRIVA [Concomitant]
  14. ADVAIR DISKUS 100/50 [Concomitant]
  15. CALCIUM [Concomitant]
  16. OXYCODONE HCL [Concomitant]

REACTIONS (3)
  - INCORRECT PRODUCT STORAGE [None]
  - THROMBOSIS [None]
  - DRUG INEFFECTIVE [None]
